FAERS Safety Report 8668025 (Version 2)
Quarter: 2012Q4

REPORT INFORMATION
  Report Type: Report from Study
  Country: KR (occurrence: KR)
  Receive Date: 20120717
  Receipt Date: 20120914
  Transmission Date: 20130627
  Serious: Yes (Hospitalization)
  Sender: FDA-Public Use
  Company Number: KR-BAYER-201022695GPV

PATIENT
  Age: 53 Year
  Sex: Male
  Weight: 62 kg

DRUGS (2)
  1. NEXAVAR [Suspect]
     Indication: HEPATIC NEOPLASM MALIGNANT
     Dosage: 800 mg (Daily Dose), , oral
     Route: 048
     Dates: start: 20090427, end: 20090515
  2. ENTECAVIR [Concomitant]
     Indication: HEPATITIS B
     Dosage: 0.5 mg (Daily Dose), , oral
     Route: 048
     Dates: start: 20070801, end: 20090615

REACTIONS (1)
  - Peritonitis bacterial [Recovered/Resolved]
